FAERS Safety Report 6381447-3 (Version None)
Quarter: 2009Q3

REPORT INFORMATION
  Report Type: 
  Country: None (occurrence: None)
  Receive Date: 20090929
  Receipt Date: 20090921
  Transmission Date: 20100115
  Serious: Yes (Hospitalization, Other)
  Sender: FDA-Public Use
  Company Number: ES-MERCK-0909ESP00021

PATIENT
  Age: 57 Year
  Sex: Male

DRUGS (3)
  1. JANUMET [Suspect]
     Indication: DIABETES MELLITUS
     Route: 048
     Dates: start: 20090701, end: 20090701
  2. JANUMET [Suspect]
     Route: 048
     Dates: start: 20090701, end: 20090701
  3. ATORVASTATIN CALCIUM [Concomitant]
     Route: 065

REACTIONS (5)
  - CARDIAC ANEURYSM [None]
  - HAEMATURIA [None]
  - HAEMORRHAGIC CEREBRAL INFARCTION [None]
  - MITRAL VALVE DISEASE MIXED [None]
  - MYOCARDIAL INFARCTION [None]
